FAERS Safety Report 4362326-X (Version None)
Quarter: 2004Q2

REPORT INFORMATION
  Report Type: 
  Country: None (occurrence: None)
  Receive Date: 20040517
  Receipt Date: 20040429
  Transmission Date: 20050107
  Serious: Yes (Other)
  Sender: FDA-Public Use
  Company Number: B0332152A

PATIENT
  Age: 35 Year
  Sex: Male

DRUGS (2)
  1. NICODERM CQ [Suspect]
     Indication: EX-SMOKER
     Dosage: TRANSDERMAL
     Route: 062
     Dates: start: 20040114
  2. NICODERM CQ [Suspect]
     Indication: EX-SMOKER
     Dosage: TRANSDERMAL
     Route: 062
     Dates: end: 20040204

REACTIONS (1)
  - PSORIASIS [None]
